FAERS Safety Report 25859219 (Version 3)
Quarter: 2025Q4

REPORT INFORMATION
  Report Type: Report from Study
  Country: CA (occurrence: CA)
  Receive Date: 20250929
  Receipt Date: 20251212
  Transmission Date: 20260118
  Serious: Yes (Other)
  Sender: PFIZER
  Company Number: CA-PFIZER INC-202500192390

PATIENT
  Age: 73 Year
  Sex: Male

DRUGS (1)
  1. VYNDAMAX [Suspect]
     Active Substance: TAFAMIDIS
     Indication: Cardiomyopathy
     Dosage: 61 MG, 1X/DAY
     Route: 048
     Dates: start: 20241026

REACTIONS (9)
  - Renal impairment [Unknown]
  - Atrial fibrillation [Unknown]
  - Peripheral swelling [Not Recovered/Not Resolved]
  - Condition aggravated [Not Recovered/Not Resolved]
  - Musculoskeletal stiffness [Unknown]
  - Myalgia [Unknown]
  - Pain in extremity [Unknown]
  - Weight increased [Unknown]
  - Oedema peripheral [Unknown]

NARRATIVE: CASE EVENT DATE: 20250101
